FAERS Safety Report 4513373-6 (Version None)
Quarter: 2004Q4

REPORT INFORMATION
  Report Type: 
  Country: None (occurrence: None)
  Receive Date: 20041130
  Receipt Date: 20040828
  Transmission Date: 20050328
  Serious: Yes (Other)
  Sender: FDA-Public Use
  Company Number: US-BRISTOL-MYERS SQUIBB COMPANY-12686549

PATIENT

DRUGS (2)
  1. ERBITUX [Suspect]
     Indication: COLORECTAL CANCER
     Dosage: 1ST INFUSION
  2. DIPHENHYDRAMINE [Concomitant]
     Indication: PREMEDICATION
     Route: 042

REACTIONS (4)
  - ACCIDENTAL OVERDOSE [None]
  - DYSPNOEA [None]
  - FLUSHING [None]
  - MEDICATION ERROR [None]
